FAERS Safety Report 23824359 (Version 4)
Quarter: 2024Q3

REPORT INFORMATION
  Report Type: Spontaneous
  Country: US (occurrence: US)
  Receive Date: 20240507
  Receipt Date: 20240819
  Transmission Date: 20241016
  Serious: No
  Sender: NOVARTIS
  Company Number: US-002147023-NVSC2024US093419

PATIENT
  Sex: Male

DRUGS (1)
  1. COSENTYX [Suspect]
     Active Substance: SECUKINUMAB
     Indication: Product used for unknown indication
     Dosage: UNK
     Route: 065

REACTIONS (5)
  - Device deployment issue [Unknown]
  - Exposure via skin contact [Unknown]
  - Needle issue [Unknown]
  - Accidental exposure to product [Unknown]
  - Drug dose omission by device [Unknown]

NARRATIVE: CASE EVENT DATE: 20240102
